FAERS Safety Report 8205548-X (Version None)
Quarter: 2012Q1

REPORT INFORMATION
  Report Type: 
  Country: None (occurrence: None)
  Receive Date: 20120313
  Receipt Date: 20120228
  Transmission Date: 20120608
  Serious: Yes (Hospitalization, Other)
  Sender: FDA-Public Use
  Company Number: US-ELI_LILLY_AND_COMPANY-US201203000321

PATIENT
  Age: 57 Year
  Sex: Female

DRUGS (11)
  1. CYMBALTA [Suspect]
     Dosage: 60 MG, EACH EVENING
  2. LYRICA [Concomitant]
     Dosage: 150 MG, UNKNOWN
  3. CYMBALTA [Suspect]
     Dosage: 30 MG, EACH MORNING
  4. VERAPAMIL [Concomitant]
  5. HYDROCHLOROTHIAZIDE [Concomitant]
  6. CYMBALTA [Suspect]
     Indication: FIBROMYALGIA
     Dosage: 90 MG, EACH EVENING
     Dates: start: 20070101, end: 20120101
  7. LYRICA [Concomitant]
     Dosage: UNK, UNKNOWN
  8. BENICAR [Concomitant]
  9. CYMBALTA [Suspect]
     Dosage: 30 MG, BID
     Dates: start: 20120101
  10. CYMBALTA [Suspect]
     Dosage: 30 MG, QD
     Dates: start: 20120101
  11. ASPIRIN [Concomitant]
     Dosage: UNK, QD

REACTIONS (19)
  - NERVE INJURY [None]
  - DRUG WITHDRAWAL SYNDROME [None]
  - PAIN [None]
  - PARAESTHESIA [None]
  - ANXIETY [None]
  - DEPRESSION [None]
  - IRRITABILITY [None]
  - JOINT INJURY [None]
  - MEMORY IMPAIRMENT [None]
  - POST PROCEDURAL COMPLICATION [None]
  - FATIGUE [None]
  - HYPERHIDROSIS [None]
  - GAIT DISTURBANCE [None]
  - COLD SWEAT [None]
  - FOOT OPERATION [None]
  - JOINT SWELLING [None]
  - PAIN IN EXTREMITY [None]
  - INSOMNIA [None]
  - NIGHTMARE [None]
